FAERS Safety Report 24666811 (Version 1)
Quarter: 2024Q4

REPORT INFORMATION
  Report Type: Spontaneous
  Country: CN (occurrence: CN)
  Receive Date: 20241126
  Receipt Date: 20241126
  Transmission Date: 20250114
  Serious: Yes (Hospitalization)
  Sender: INCYTE
  Company Number: CN-002147023-NVSC2024CN223528

PATIENT

DRUGS (28)
  1. RUXOLITINIB [Suspect]
     Active Substance: RUXOLITINIB
     Indication: Leukaemia
     Dosage: UNK
     Route: 048
     Dates: start: 2022
  2. RUXOLITINIB [Suspect]
     Active Substance: RUXOLITINIB
     Indication: Lymphoma
  3. VINCRISTINE [Suspect]
     Active Substance: VINCRISTINE
     Indication: Leukaemia
     Dosage: UNK (PART OF VICLP REGIMEN AND VCP REGIMEN)
     Route: 065
     Dates: start: 2022
  4. VINCRISTINE [Suspect]
     Active Substance: VINCRISTINE
     Indication: Lymphoma
  5. IDARUBICIN [Suspect]
     Active Substance: IDARUBICIN
     Indication: Leukaemia
     Dosage: UNK (PART OF VICLP REGIMEN AND VCP REGIMEN)
     Route: 065
     Dates: start: 2022
  6. IDARUBICIN [Suspect]
     Active Substance: IDARUBICIN
     Indication: Lymphoma
  7. CYCLOPHOSPHAMIDE [Suspect]
     Active Substance: CYCLOPHOSPHAMIDE
     Indication: Leukaemia
     Dosage: UNK (PART OF VICLP REGIMEN AND VCP REGIMEN)
     Route: 065
     Dates: start: 2022
  8. CYCLOPHOSPHAMIDE [Suspect]
     Active Substance: CYCLOPHOSPHAMIDE
     Indication: Lymphoma
  9. PREDNISONE [Suspect]
     Active Substance: PREDNISONE
     Indication: Leukaemia
     Dosage: UNK (PART OF VICLP REGIMEN AND VCP REGIMEN)
     Route: 065
     Dates: start: 2022
  10. PREDNISONE [Suspect]
     Active Substance: PREDNISONE
     Indication: Lymphoma
  11. PEGASPARGASE [Suspect]
     Active Substance: PEGASPARGASE
     Indication: Leukaemia
     Dosage: UNK (PART OF VICLP REGIMEN)
     Route: 065
     Dates: start: 2022
  12. PEGASPARGASE [Suspect]
     Active Substance: PEGASPARGASE
     Indication: Lymphoma
  13. CYTARABINE [Suspect]
     Active Substance: CYTARABINE
     Indication: Leukaemia
     Dosage: UNK (HIGH-DOSE)
     Route: 065
     Dates: start: 2022
  14. CYTARABINE [Suspect]
     Active Substance: CYTARABINE
     Indication: Lymphoma
     Dosage: UNK (PART OF CAG REGIMEN)
     Route: 065
     Dates: start: 20230114
  15. METHOTREXATE [Suspect]
     Active Substance: METHOTREXATE
     Indication: Leukaemia
     Dosage: UNK (HIGH-DOSE)
     Route: 065
     Dates: start: 2022
  16. METHOTREXATE [Suspect]
     Active Substance: METHOTREXATE
     Indication: Lymphoma
  17. METHOTREXATE [Suspect]
     Active Substance: METHOTREXATE
     Indication: Psoriatic arthropathy
  18. DARATUMUMAB [Suspect]
     Active Substance: DARATUMUMAB
     Indication: Leukaemia
     Dosage: 400 MG, QW
     Route: 065
     Dates: start: 2022
  19. DARATUMUMAB [Suspect]
     Active Substance: DARATUMUMAB
     Indication: Lymphoma
  20. ETOPOSIDE [Suspect]
     Active Substance: ETOPOSIDE
     Indication: Leukaemia
     Dosage: UNK
     Route: 065
     Dates: start: 2022
  21. ETOPOSIDE [Suspect]
     Active Substance: ETOPOSIDE
     Indication: Lymphoma
  22. SELINEXOR [Suspect]
     Active Substance: SELINEXOR
     Indication: Leukaemia
     Dosage: 60 MG, QW
     Route: 065
     Dates: start: 20230114
  23. SELINEXOR [Suspect]
     Active Substance: SELINEXOR
     Indication: Lymphoma
  24. VENETOCLAX [Suspect]
     Active Substance: VENETOCLAX
     Indication: Leukaemia
     Dosage: 200 MG, QW (ON DAY1-28)
     Route: 065
     Dates: start: 20230114
  25. VENETOCLAX [Suspect]
     Active Substance: VENETOCLAX
     Indication: Lymphoma
  26. ACLARUBICIN HYDROCHLORIDE [Suspect]
     Active Substance: ACLARUBICIN HYDROCHLORIDE
     Indication: Leukaemia
     Dosage: UNK (PART OF CAG REGIMEN)
     Route: 065
     Dates: start: 20230114
  27. ACLARUBICIN HYDROCHLORIDE [Suspect]
     Active Substance: ACLARUBICIN HYDROCHLORIDE
     Indication: Lymphoma
  28. DICLOFENAC SODIUM [Concomitant]
     Active Substance: DICLOFENAC SODIUM
     Indication: Psoriatic arthropathy
     Dosage: UNK
     Route: 065

REACTIONS (2)
  - Drug ineffective [Unknown]
  - Product use in unapproved indication [Unknown]
